FAERS Safety Report 20939821 (Version 1)
Quarter: 2022Q2

REPORT INFORMATION
  Report Type: Spontaneous
  Country: CA (occurrence: CA)
  Receive Date: 20220609
  Receipt Date: 20220609
  Transmission Date: 20220720
  Serious: Yes (Other)
  Sender: FDA-Public Use
  Company Number: None

PATIENT
  Sex: Male

DRUGS (5)
  1. CITALOPRAM HYDROBROMIDE [Suspect]
     Active Substance: CITALOPRAM HYDROBROMIDE
     Indication: Sexually inappropriate behaviour
     Dosage: 10 MG
  2. CITALOPRAM HYDROBROMIDE [Suspect]
     Active Substance: CITALOPRAM HYDROBROMIDE
     Indication: Dementia
  3. OLANZAPINE [Suspect]
     Active Substance: OLANZAPINE
     Indication: Sexually inappropriate behaviour
     Dosage: 15 MG
  4. OLANZAPINE [Suspect]
     Active Substance: OLANZAPINE
     Indication: Dementia
  5. MEDROXYPROGESTERONE [Concomitant]
     Active Substance: MEDROXYPROGESTERONE
     Indication: Dementia
     Dosage: 100 MG
     Route: 048

REACTIONS (5)
  - Condition aggravated [Unknown]
  - Sedation [Unknown]
  - Sexually inappropriate behaviour [Unknown]
  - Drug ineffective [Unknown]
  - Product use in unapproved indication [Unknown]
